FAERS Safety Report 7739106-8 (Version None)
Quarter: 2011Q3

REPORT INFORMATION
  Report Type: 
  Country: None (occurrence: None)
  Receive Date: 20110909
  Receipt Date: 20110831
  Transmission Date: 20111222
  Serious: No
  Sender: FDA-Public Use
  Company Number: US-BIOGENIDEC-2011BI033918

PATIENT
  Age: 60 Year
  Sex: Female

DRUGS (3)
  1. TYSABRI [Suspect]
     Route: 042
     Dates: start: 20080501, end: 20100701
  2. TYSABRI [Suspect]
     Indication: MULTIPLE SCLEROSIS
     Route: 042
     Dates: start: 20110210
  3. TYSABRI [Suspect]
     Route: 042
     Dates: start: 20050223

REACTIONS (4)
  - ASTHENIA [None]
  - PAIN [None]
  - NERVOUSNESS [None]
  - BALANCE DISORDER [None]
